FAERS Safety Report 6723285-5 (Version None)
Quarter: 2010Q2

REPORT INFORMATION
  Report Type: 
  Country: None (occurrence: None)
  Receive Date: 20100512
  Receipt Date: 20100512
  Transmission Date: 20101027
  Serious: No
  Sender: FDA-Public Use
  Company Number: None

PATIENT
  Age: 47 Year
  Sex: Male
  Weight: 99 kg

DRUGS (1)
  1. HEPARIN [Suspect]
     Indication: ANTICOAGULANT THERAPY
     Dosage: 40K BOLUS FOR INITIAL HEPARIN INTERMITTENT BOLUS OF 5K -10 UNITS AT A TIME TO MAINTAIN
     Dates: start: 20100211

REACTIONS (1)
  - NO ADVERSE EVENT [None]
